FAERS Safety Report 5511486-3 (Version None)
Quarter: 2007Q4

REPORT INFORMATION
  Report Type: 
  Country: None (occurrence: None)
  Receive Date: 20071109
  Receipt Date: 20071105
  Transmission Date: 20080405
  Serious: Yes (Hospitalization)
  Sender: FDA-Public Use
  Company Number: A0691454A

PATIENT
  Age: 60 Year
  Sex: Male

DRUGS (16)
  1. COREG [Suspect]
     Indication: HYPERTENSION
     Dosage: 6.25MG TWICE PER DAY
     Route: 048
     Dates: start: 20050101, end: 20071102
  2. DIOVAN [Suspect]
     Indication: DRUG USE FOR UNKNOWN INDICATION
     Dosage: 80MG PER DAY
     Route: 048
     Dates: start: 20071020, end: 20071031
  3. POTASSIUM CHLORIDE [Concomitant]
  4. COUMADIN [Concomitant]
  5. AMARYL [Concomitant]
  6. HUMALOG [Concomitant]
  7. BYETTA [Concomitant]
  8. ZANTAC [Concomitant]
  9. ALLEGRA [Concomitant]
  10. SINGULAIR [Concomitant]
  11. BUMETANIDE [Concomitant]
  12. WARFARIN SODIUM [Concomitant]
  13. NEXIUM [Concomitant]
  14. SYNTHROID [Concomitant]
  15. FERROUS SULFATE TAB [Concomitant]
  16. MULTI-VITAMIN [Concomitant]

REACTIONS (11)
  - BLOOD POTASSIUM DECREASED [None]
  - CARDIAC FAILURE [None]
  - DIZZINESS [None]
  - DRUG INEFFECTIVE [None]
  - DYSPNOEA [None]
  - FATIGUE [None]
  - FLUID RETENTION [None]
  - HEADACHE [None]
  - INSOMNIA [None]
  - INTESTINAL HAEMORRHAGE [None]
  - WEIGHT INCREASED [None]
